FAERS Safety Report 6780741-1 (Version None)
Quarter: 2010Q2

REPORT INFORMATION
  Report Type: 
  Country: None (occurrence: None)
  Receive Date: 20100621
  Receipt Date: 20100615
  Transmission Date: 20101027
  Serious: Yes (Life-Threatening, Hospitalization, Other)
  Sender: FDA-Public Use
  Company Number: GR-SHIRE-SPV1-2010-01111

PATIENT

DRUGS (4)
  1. MEZAVANT [Suspect]
     Indication: INFLAMMATORY BOWEL DISEASE
     Dosage: 4.8 G, 1X/DAY:QD
     Route: 048
     Dates: start: 20100504, end: 20100531
  2. NEXIUM [Concomitant]
     Dosage: 1 DF, UNK
  3. PREZOLON [Concomitant]
     Dosage: 20 MG, 1X/DAY:QD
  4. CALCIORAL                          /00108001/ [Concomitant]
     Dosage: 2 DF, 1X/DAY:QD

REACTIONS (2)
  - LEUKOPENIA [None]
  - NEUTROPENIA [None]
